FAERS Safety Report 8004420-8 (Version None)
Quarter: 2011Q4

REPORT INFORMATION
  Report Type: 
  Country: None (occurrence: None)
  Receive Date: 20111221
  Receipt Date: 20111221
  Transmission Date: 20120403
  Serious: Yes (Hospitalization)
  Sender: FDA-Public Use
  Company Number: None

PATIENT
  Age: 42 Year
  Sex: Male
  Weight: 79 kg

DRUGS (12)
  1. IBUPROFEN [Concomitant]
  2. ZOFRAN [Concomitant]
  3. PAZOPANIB [Suspect]
     Indication: LUNG NEOPLASM MALIGNANT
     Dosage: 800 MG ORAL DAILY
     Route: 048
  4. METOPROLOL SUCCINATE [Concomitant]
  5. NORVASC [Concomitant]
  6. MULTI-VITAMIN [Concomitant]
  7. PROCHLORPERAZINE [Concomitant]
  8. REMERON [Concomitant]
  9. DOCUSATE SODIUM [Concomitant]
  10. DILAUDID [Concomitant]
  11. LISINOPRIL [Concomitant]
  12. MAGNESIUM [Concomitant]

REACTIONS (2)
  - PERICARDIAL EFFUSION MALIGNANT [None]
  - DISEASE RECURRENCE [None]
